FAERS Safety Report 5658026-6 (Version None)
Quarter: 2008Q1

REPORT INFORMATION
  Report Type: 
  Country: None (occurrence: None)
  Receive Date: 20080310
  Receipt Date: 20070511
  Transmission Date: 20080703
  Serious: No
  Sender: FDA-Public Use
  Company Number: US-BAYER-200610434BCC

PATIENT
  Age: 86 Year
  Sex: Female
  Weight: 63 kg

DRUGS (3)
  1. ALEVE [Suspect]
     Indication: PAIN
     Dosage: TOTAL DAILY DOSE: 220 MG  UNIT DOSE: 220 MG
     Route: 048
     Dates: start: 20060125
  2. ALEVE [Suspect]
     Dosage: TOTAL DAILY DOSE: 110 MG  UNIT DOSE: 220 MG
     Route: 048
  3. LEVOTHROID [Concomitant]

REACTIONS (2)
  - DIZZINESS [None]
  - SWOLLEN TONGUE [None]
